FAERS Safety Report 6997610-4 (Version None)
Quarter: 2010Q3

REPORT INFORMATION
  Report Type: 
  Country: None (occurrence: None)
  Receive Date: 20100918
  Receipt Date: 20091106
  Transmission Date: 20110219
  Serious: No
  Sender: FDA-Public Use
  Company Number: US-WYE-H12079909

PATIENT
  Sex: Female

DRUGS (3)
  1. PRISTIQ [Suspect]
     Dosage: UNKNOWN
  2. GLIPIZIDE [Concomitant]
  3. LIPITOR [Concomitant]

REACTIONS (1)
  - TINNITUS [None]
